FAERS Safety Report 24840272 (Version 1)
Quarter: 2025Q1

REPORT INFORMATION
  Report Type: Spontaneous
  Country: US (occurrence: US)
  Receive Date: 20250114
  Receipt Date: 20250114
  Transmission Date: 20250409
  Serious: Yes (Hospitalization)
  Sender: CHEPLAPHARM
  Company Number: None

PATIENT
  Age: 32 Year
  Sex: Male
  Weight: 83.8 kg

DRUGS (27)
  1. OLANZAPINE [Suspect]
     Active Substance: OLANZAPINE
     Indication: Schizoaffective disorder bipolar type
     Dosage: EVERY NIGHT. AT ADMISSION DAY 29.?DAILY DOSE: 40 MILLIGRAM
  2. OLANZAPINE [Suspect]
     Active Substance: OLANZAPINE
     Indication: Attention deficit hyperactivity disorder
     Dosage: EVERY NIGHT. AT ADMISSION DAY 29.?DAILY DOSE: 40 MILLIGRAM
  3. OLANZAPINE [Suspect]
     Active Substance: OLANZAPINE
     Indication: Autism spectrum disorder
     Dosage: EVERY NIGHT. AT ADMISSION DAY 29.?DAILY DOSE: 40 MILLIGRAM
  4. OLANZAPINE [Suspect]
     Active Substance: OLANZAPINE
     Indication: Schizoaffective disorder bipolar type
     Dosage: AT ADMISSION DAY 55. EVERY NIGHT.?DAILY DOSE: 50 MILLIGRAM
  5. OLANZAPINE [Suspect]
     Active Substance: OLANZAPINE
     Indication: Attention deficit hyperactivity disorder
     Dosage: AT ADMISSION DAY 55. EVERY NIGHT.?DAILY DOSE: 50 MILLIGRAM
  6. OLANZAPINE [Suspect]
     Active Substance: OLANZAPINE
     Indication: Autism spectrum disorder
     Dosage: AT ADMISSION DAY 55. EVERY NIGHT.?DAILY DOSE: 50 MILLIGRAM
  7. QUETIAPINE [Suspect]
     Active Substance: QUETIAPINE
     Indication: Schizoaffective disorder bipolar type
     Dosage: NIGHTLY?DAILY DOSE: 100 MILLIGRAM
  8. QUETIAPINE [Suspect]
     Active Substance: QUETIAPINE
     Indication: Attention deficit hyperactivity disorder
     Dosage: NIGHTLY?DAILY DOSE: 100 MILLIGRAM
  9. QUETIAPINE [Suspect]
     Active Substance: QUETIAPINE
     Indication: Autism spectrum disorder
     Dosage: NIGHTLY?DAILY DOSE: 100 MILLIGRAM
  10. DIVALPROEX SODIUM [Suspect]
     Active Substance: DIVALPROEX SODIUM
     Indication: Schizoaffective disorder bipolar type
     Dosage: AT BEDTIME; EXTENDED RELEASE?DAILY DOSE: 1250 MILLIGRAM
  11. DIVALPROEX SODIUM [Suspect]
     Active Substance: DIVALPROEX SODIUM
     Indication: Autism spectrum disorder
     Dosage: AT BEDTIME; EXTENDED RELEASE?DAILY DOSE: 1250 MILLIGRAM
  12. DIVALPROEX SODIUM [Suspect]
     Active Substance: DIVALPROEX SODIUM
     Indication: Attention deficit hyperactivity disorder
     Dosage: AT BEDTIME; EXTENDED RELEASE?DAILY DOSE: 1250 MILLIGRAM
  13. ZIPRASIDONE [Suspect]
     Active Substance: ZIPRASIDONE
     Indication: Attention deficit hyperactivity disorder
  14. ZIPRASIDONE [Suspect]
     Active Substance: ZIPRASIDONE
     Indication: Schizoaffective disorder bipolar type
  15. ZIPRASIDONE [Suspect]
     Active Substance: ZIPRASIDONE
     Indication: Autism spectrum disorder
  16. ESCITALOPRAM [Suspect]
     Active Substance: ESCITALOPRAM OXALATE
     Indication: Schizoaffective disorder bipolar type
     Dosage: DAILY DOSE: 10 MILLIGRAM
  17. ESCITALOPRAM [Suspect]
     Active Substance: ESCITALOPRAM OXALATE
     Indication: Attention deficit hyperactivity disorder
     Dosage: DAILY DOSE: 10 MILLIGRAM
  18. ESCITALOPRAM [Suspect]
     Active Substance: ESCITALOPRAM OXALATE
     Indication: Autism spectrum disorder
     Dosage: DAILY DOSE: 10 MILLIGRAM
  19. BENZTROPINE [Suspect]
     Active Substance: BENZTROPINE
     Indication: Schizoaffective disorder bipolar type
  20. BENZTROPINE [Suspect]
     Active Substance: BENZTROPINE
     Indication: Autism spectrum disorder
  21. BENZTROPINE [Suspect]
     Active Substance: BENZTROPINE
     Indication: Attention deficit hyperactivity disorder
  22. PERPHENAZINE [Suspect]
     Active Substance: PERPHENAZINE
     Indication: Schizoaffective disorder bipolar type
     Dosage: DAILY DOSE: 16 MILLIGRAM
  23. PERPHENAZINE [Suspect]
     Active Substance: PERPHENAZINE
     Indication: Autism spectrum disorder
     Dosage: DAILY DOSE: 16 MILLIGRAM
  24. PERPHENAZINE [Suspect]
     Active Substance: PERPHENAZINE
     Indication: Attention deficit hyperactivity disorder
     Dosage: DAILY DOSE: 16 MILLIGRAM
  25. FLUOXETINE [Concomitant]
     Active Substance: FLUOXETINE HYDROCHLORIDE
     Dosage: DAILY DOSE: 20 MILLIGRAM
  26. FLUOXETINE [Concomitant]
     Active Substance: FLUOXETINE HYDROCHLORIDE
     Dosage: DAILY DOSE: 10 MILLIGRAM
  27. ARIPIPRAZOLE [Concomitant]
     Active Substance: ARIPIPRAZOLE
     Dosage: DAILY DOSE: 5 MILLIGRAM

REACTIONS (4)
  - Extrapyramidal disorder [Unknown]
  - Fall [Unknown]
  - Therapeutic response decreased [Unknown]
  - Antipsychotic drug level increased [Unknown]
